FAERS Safety Report 23494765 (Version 3)
Quarter: 2024Q2

REPORT INFORMATION
  Report Type: Spontaneous
  Country: US (occurrence: US)
  Receive Date: 20240207
  Receipt Date: 20240528
  Transmission Date: 20240715
  Serious: Yes (Other)
  Sender: FDA-Public Use
  Company Number: US-SA-SAC20240206000397

PATIENT
  Age: 55 Year
  Sex: Female

DRUGS (20)
  1. DUPIXENT [Suspect]
     Active Substance: DUPILUMAB
     Indication: Asthma
     Dosage: 300 MG, QOW
     Route: 058
     Dates: start: 20190523
  2. ALBUTEROL SULFATE [Concomitant]
     Active Substance: ALBUTEROL SULFATE
  3. BUSPIRONE [Concomitant]
     Active Substance: BUSPIRONE HYDROCHLORIDE
  4. CARBOPLATIN [Concomitant]
     Active Substance: CARBOPLATIN
  5. DIAZEPAM [Concomitant]
     Active Substance: DIAZEPAM
  6. DULERA [Concomitant]
     Active Substance: FORMOTEROL FUMARATE DIHYDRATE\MOMETASONE FUROATE
  7. DULOXETINE [Concomitant]
     Active Substance: DULOXETINE
  8. EPINEPHRINE [Concomitant]
     Active Substance: EPINEPHRINE
  9. ESCITALOPRAM [Concomitant]
     Active Substance: ESCITALOPRAM OXALATE
  10. FLUTICASONE [Concomitant]
     Active Substance: FLUTICASONE
  11. IBUPROFEN [Concomitant]
     Active Substance: IBUPROFEN
  12. KEYTRUDA [Concomitant]
     Active Substance: PEMBROLIZUMAB
  13. LISINOPRIL [Concomitant]
     Active Substance: LISINOPRIL
  14. MONTELUKAST [Concomitant]
     Active Substance: MONTELUKAST SODIUM
  15. METHYLPREDNISOLONE [Concomitant]
     Active Substance: METHYLPREDNISOLONE
  16. LEVETIRACETAM [Concomitant]
     Active Substance: LEVETIRACETAM
  17. CYCLOBENZAPRINE [Concomitant]
     Active Substance: CYCLOBENZAPRINE
  18. HYDROXYZINE HYDROCHLORIDE [Concomitant]
     Active Substance: HYDROXYZINE HYDROCHLORIDE
  19. SPIRIVA [Concomitant]
     Active Substance: TIOTROPIUM BROMIDE MONOHYDRATE
  20. SPIRIVA [Concomitant]
     Active Substance: TIOTROPIUM BROMIDE MONOHYDRATE

REACTIONS (3)
  - Cancer in remission [Recovering/Resolving]
  - Asthma [Unknown]
  - Drug ineffective [Unknown]
